FAERS Safety Report 9513635 (Version 1)
Quarter: 2013Q3

REPORT INFORMATION
  Report Type: Spontaneous
  Country: ES (occurrence: ES)
  Receive Date: 20130910
  Receipt Date: 20130910
  Transmission Date: 20140515
  Serious: Yes (Hospitalization, Other)
  Sender: FDA-Public Use
  Company Number: ES-GLAXOSMITHKLINE-B0920194A

PATIENT
  Age: 50 Year
  Sex: Female

DRUGS (3)
  1. LAMOTRIGINE [Suspect]
     Indication: CONVULSION
     Dosage: 50MG TWICE PER DAY
     Route: 065
  2. METAMIZOLE [Concomitant]
     Dosage: 575MG FOUR TIMES PER DAY
  3. IBUPROFEN [Concomitant]
     Dosage: 600MG THREE TIMES PER DAY

REACTIONS (28)
  - Stevens-Johnson syndrome [Recovered/Resolved]
  - Toxic epidermal necrolysis [Recovered/Resolved]
  - Eye penetration [Not Recovered/Not Resolved]
  - Wound haemorrhage [Unknown]
  - Eye haemorrhage [Unknown]
  - Punctate keratitis [Unknown]
  - Eye ulcer [Not Recovered/Not Resolved]
  - Pyrexia [Unknown]
  - Malaise [Unknown]
  - Stomatitis [Unknown]
  - Conjunctivitis [Unknown]
  - Face oedema [Unknown]
  - Skin lesion [Unknown]
  - White blood cell count increased [Unknown]
  - White blood cells urine positive [Unknown]
  - Rash pruritic [Unknown]
  - Eyelid disorder [Unknown]
  - Genital lesion [Unknown]
  - Mucous membrane disorder [Unknown]
  - Rash macular [Unknown]
  - Blister [Unknown]
  - Corneal erosion [Unknown]
  - Ocular hyperaemia [Unknown]
  - Pharyngeal lesion [Unknown]
  - Eye disorder [Unknown]
  - Ulcer [Unknown]
  - Trichiasis [Unknown]
  - Eye swelling [Unknown]
